FAERS Safety Report 9538652 (Version 1)
Quarter: 2013Q2

REPORT INFORMATION
  Report Type: Spontaneous
  Country: US (occurrence: None)
  Receive Date: 20130517
  Receipt Date: 20130517
  Transmission Date: 20140414
  Serious: Yes (Other)
  Sender: FDA-Public Use
  Company Number: 1000042600

PATIENT
  Age: 38 Year
  Sex: Female

DRUGS (3)
  1. VIIBRYD [Suspect]
     Indication: DEPRESSION
     Route: 048
     Dates: start: 201201, end: 20130110
  2. VIIBRYD [Suspect]
     Indication: DEPRESSION
     Route: 048
     Dates: start: 20130111, end: 20130211
  3. LAMICTAL (LAMOTRIGINE) (LAMOTRIGINE) [Concomitant]

REACTIONS (1)
  - Fatigue [None]
